FAERS Safety Report 9361808 (Version 5)
Quarter: 2013Q3

REPORT INFORMATION
  Report Type: Spontaneous
  Country: US (occurrence: US)
  Receive Date: 20130621
  Receipt Date: 20130717
  Transmission Date: 20140515
  Serious: Yes (Hospitalization)
  Sender: FDA-Public Use
  Company Number: US-JNJFOC-20130607856

PATIENT
  Age: 67 Year
  Sex: Male
  Weight: 55.34 kg

DRUGS (9)
  1. XARELTO [Suspect]
     Indication: DEEP VEIN THROMBOSIS
     Dosage: WITH MEALS
     Route: 048
     Dates: start: 20130102, end: 20130115
  2. ASPIRIN [Suspect]
     Indication: PRODUCT USED FOR UNKNOWN INDICATION
     Route: 048
     Dates: start: 20130102, end: 20130115
  3. ATIVAN [Concomitant]
     Dosage: AS NECESSARY
     Route: 048
     Dates: start: 20130102, end: 20130115
  4. HYDROCHLOROTHIAZIDE [Concomitant]
     Route: 048
     Dates: start: 20130102, end: 20130115
  5. POTASSIUM CHLORIDE [Concomitant]
     Route: 048
     Dates: start: 20130102, end: 20130115
  6. MAGNESIUM OXIDE [Concomitant]
     Route: 048
     Dates: start: 20130102, end: 20130115
  7. LOPRESSOR [Concomitant]
     Route: 048
     Dates: start: 20130102, end: 20130115
  8. NORVASC [Concomitant]
     Route: 048
     Dates: start: 20130102, end: 20130115
  9. FLOMAX [Concomitant]
     Route: 065
     Dates: start: 20130102, end: 20130115

REACTIONS (7)
  - Computerised tomogram abnormal [Recovered/Resolved]
  - Deep vein thrombosis [Recovered/Resolved]
  - Asthenia [Recovered/Resolved]
  - Platelet count decreased [Recovered/Resolved]
  - Red blood cell count decreased [Recovered/Resolved]
  - Occult blood positive [Recovered/Resolved]
  - Creatinine renal clearance decreased [Recovered/Resolved]
